FAERS Safety Report 5141171-1 (Version None)
Quarter: 2006Q4

REPORT INFORMATION
  Report Type: 
  Country: None (occurrence: None)
  Receive Date: 20061026
  Receipt Date: 20061016
  Transmission Date: 20070319
  Serious: Yes (Hospitalization)
  Sender: FDA-Public Use
  Company Number: E2020-00492-SPO-JP

PATIENT
  Sex: Male
  Weight: 49 kg

DRUGS (6)
  1. ARICEPT [Suspect]
     Indication: DEMENTIA ALZHEIMER'S TYPE
     Dosage: 5 MG, 1 IN 1 D, ORAL
     Route: 048
     Dates: start: 20041009, end: 20060816
  2. BUP-4 (PROPIVERINE HYDROCHLORIDE) [Suspect]
     Dosage: 10 MG, 1 IN 1 D, ORAL
     Route: 048
     Dates: start: 19980320, end: 20060816
  3. CEROCOL (IFENPRODIL TARTRATE) [Concomitant]
  4. TICLOPIDINE HCL [Concomitant]
  5. NIVADIL (NILVADIPINE ) [Concomitant]
  6. ATELEC (CLINIDIPINE) [Concomitant]

REACTIONS (7)
  - AORTIC ANEURYSM [None]
  - CEREBELLAR INFARCTION [None]
  - DEMENTIA [None]
  - DISEASE PROGRESSION [None]
  - FALL [None]
  - PNEUMONIA [None]
  - RHABDOMYOLYSIS [None]
